FAERS Safety Report 20071293 (Version 1)
Quarter: 2021Q4

REPORT INFORMATION
  Report Type: Spontaneous
  Country: ES (occurrence: ES)
  Receive Date: 20211115
  Receipt Date: 20211115
  Transmission Date: 20220303
  Serious: Yes (Life-Threatening, Hospitalization, Disabling)
  Sender: FDA-Public Use
  Company Number: None

PATIENT
  Age: 48 Year
  Sex: Female
  Weight: 53 kg

DRUGS (1)
  1. HYRIMOZ [Suspect]
     Active Substance: ADALIMUMAB-ADAZ
     Indication: Psoriatic arthropathy
     Dosage: UNK (INYECCION SUBCUTANEA)(2 PRE-FILLED PENS OF 0.8 ML)
     Route: 058
     Dates: start: 20210112, end: 20210831

REACTIONS (1)
  - Neurosarcoidosis [Recovering/Resolving]

NARRATIVE: CASE EVENT DATE: 20210812
